FAERS Safety Report 10446000 (Version 1)
Quarter: 2014Q3

REPORT INFORMATION
  Report Type: Spontaneous
  Country: SE (occurrence: SE)
  Receive Date: 20140910
  Receipt Date: 20140910
  Transmission Date: 20150326
  Serious: Yes (Other)
  Sender: FDA-Public Use
  Company Number: SE-ABBVIE-14P-150-1281960-00

PATIENT
  Age: 35 Year
  Sex: Female

DRUGS (3)
  1. ERGENYL [Suspect]
     Active Substance: VALPROIC ACID
     Indication: EPILEPSY
  2. FYCOMPA [Concomitant]
     Active Substance: PERAMPANEL
     Indication: PRODUCT USED FOR UNKNOWN INDICATION
  3. VIMPAT [Suspect]
     Active Substance: LACOSAMIDE
     Indication: EPILEPSY

REACTIONS (4)
  - Dysgraphia [Unknown]
  - Convulsion [Unknown]
  - Tremor [Not Recovered/Not Resolved]
  - Loss of consciousness [Unknown]

NARRATIVE: CASE EVENT DATE: 20140728
